APPROVED DRUG PRODUCT: GENTAMICIN SULFATE
Active Ingredient: GENTAMICIN SULFATE
Strength: EQ 10MG BASE/ML
Dosage Form/Route: INJECTABLE;INJECTION
Application: A215236 | Product #001
Applicant: EUGIA PHARMA SPECIALITIES LTD
Approved: Jan 8, 2024 | RLD: No | RS: No | Type: DISCN